FAERS Safety Report 7555749-9 (Version None)
Quarter: 2011Q2

REPORT INFORMATION
  Report Type: 
  Country: None (occurrence: None)
  Receive Date: 20110617
  Receipt Date: 20110607
  Transmission Date: 20111010
  Serious: Yes (Hospitalization)
  Sender: FDA-Public Use
  Company Number: SE-GILEAD-E2B_00001334

PATIENT
  Sex: Female

DRUGS (10)
  1. ACETAMINOPHEN [Concomitant]
     Route: 065
  2. DIGOXIN [Concomitant]
     Route: 065
  3. AMBRISENTAN [Suspect]
     Indication: PRODUCT USED FOR UNKNOWN INDICATION
     Route: 048
     Dates: start: 20110503
  4. ATACAND [Concomitant]
     Route: 065
  5. WARAN [Concomitant]
     Route: 065
  6. IMDUR [Concomitant]
     Route: 065
  7. SIMVASTATIN [Concomitant]
     Route: 065
  8. FUROSEMIDE [Concomitant]
     Route: 065
  9. OMEPRAZOLE [Concomitant]
     Route: 065
  10. SPIRONOLACTONE [Concomitant]
     Route: 065

REACTIONS (2)
  - PULMONARY OEDEMA [None]
  - RESPIRATORY RATE INCREASED [None]
